FAERS Safety Report 15993805 (Version 2)
Quarter: 2019Q1

REPORT INFORMATION
  Report Type: Spontaneous
  Country: FR (occurrence: FR)
  Receive Date: 20190222
  Receipt Date: 20190328
  Transmission Date: 20190418
  Serious: Yes (Hospitalization, Other)
  Sender: FDA-Public Use
  Company Number: FR-ACCORD-094209

PATIENT
  Age: 24 Year
  Sex: Male

DRUGS (5)
  1. CLOZAPINE. [Concomitant]
     Active Substance: CLOZAPINE
     Indication: SCHIZOPHRENIA
  2. MIRTAZAPINE. [Concomitant]
     Active Substance: MIRTAZAPINE
     Indication: PRODUCT USED FOR UNKNOWN INDICATION
     Dosage: 15 MG, 30 MG DAILY
  3. ARIPIPRAZOLE. [Suspect]
     Active Substance: ARIPIPRAZOLE
     Indication: PSYCHOTIC SYMPTOM
     Dosage: 10 TO 30 MG DAILY
  4. LOXAPINE/LOXAPINE HYDROCHLORIDE/LOXAPINE SUCCINATE [Concomitant]
     Indication: ANXIOLYTIC THERAPY
  5. ESCITALOPRAM [Suspect]
     Active Substance: ESCITALOPRAM OXALATE
     Indication: PRODUCT USED FOR UNKNOWN INDICATION

REACTIONS (5)
  - Drug ineffective [Unknown]
  - Drug intolerance [Unknown]
  - Cardiac disorder [Unknown]
  - Electrocardiogram QT prolonged [Unknown]
  - Akathisia [Unknown]
